FAERS Safety Report 6223646-7 (Version None)
Quarter: 2009Q2

REPORT INFORMATION
  Report Type: 
  Country: None (occurrence: None)
  Receive Date: 20090611
  Receipt Date: 20090306
  Transmission Date: 20091009
  Serious: No
  Sender: FDA-Public Use
  Company Number: US-ABBOTT-08P-163-0469030-00

PATIENT
  Sex: Female
  Weight: 63.56 kg

DRUGS (19)
  1. HUMIRA [Suspect]
     Indication: CROHN'S DISEASE
     Dosage: 4 INJ OF 40 MG EACH
     Route: 058
     Dates: start: 20080801
  2. VALIUM [Concomitant]
     Indication: NERVOUSNESS
     Route: 048
  3. ZOLOFT [Concomitant]
     Indication: DEPRESSION
     Route: 048
     Dates: start: 20030101
  4. NEURONTIN [Concomitant]
     Indication: MIGRAINE
     Route: 048
     Dates: start: 20030101
  5. MAGNESIUM SULFATE [Concomitant]
     Indication: VITAMIN SUPPLEMENTATION
     Route: 048
     Dates: start: 20070101
  6. FLAGYL [Concomitant]
     Indication: INFECTION PROPHYLAXIS
     Route: 048
     Dates: start: 20050101
  7. LEVISEN [Concomitant]
     Indication: PAIN
     Dosage: 1-2 TABLETS DAILY
     Route: 048
     Dates: start: 20060101
  8. BENTYL [Concomitant]
     Indication: PAIN
     Dosage: 1-2 TABLETS AS NEEDED
     Route: 048
  9. LISINOPRIL [Concomitant]
     Indication: HYPERTENSION
     Route: 048
     Dates: start: 20080301
  10. METOCLOPRAMIDE [Concomitant]
     Indication: NAUSEA
     Route: 048
     Dates: start: 20060101
  11. OMEPRAZOLE [Concomitant]
     Indication: GASTROOESOPHAGEAL REFLUX DISEASE
     Route: 048
     Dates: start: 20030101
  12. CLARITIN [Concomitant]
     Indication: HYPERSENSITIVITY
     Route: 048
  13. LOMOTIL [Concomitant]
     Indication: DIARRHOEA
     Dosage: 2.5 MG TABS, 3-4 TIMES A DAY
     Route: 048
     Dates: start: 20030101
  14. METHOTREXATE [Concomitant]
     Indication: CROHN'S DISEASE
  15. VICODIN [Concomitant]
     Indication: PAIN
     Dates: start: 20000101
  16. VICODIN [Concomitant]
  17. BENADRYL [Concomitant]
     Indication: INSOMNIA
  18. CIPROFLOXACIN [Concomitant]
     Indication: DRUG USE FOR UNKNOWN INDICATION
  19. ACIDOPHILUS [Concomitant]
     Indication: DRUG USE FOR UNKNOWN INDICATION

REACTIONS (2)
  - INJECTION SITE PAIN [None]
  - OEDEMA PERIPHERAL [None]
